FAERS Safety Report 9180051 (Version 1)
Quarter: 2012Q4

REPORT INFORMATION
  Report Type: 
  Country: US (occurrence: US)
  Receive Date: 20121029
  Receipt Date: 20121029
  Transmission Date: 20130627
  Serious: Yes (Hospitalization)
  Sender: FDA-Public Use
  Company Number: US-AMGEN-USASP2012053853

PATIENT
  Age: 35 Year
  Sex: Female

DRUGS (15)
  1. ENBREL [Suspect]
     Indication: PRODUCT USED FOR UNKNOWN INDICATION
     Dosage: 50 mg, qwk
     Route: 058
     Dates: end: 20120824
  2. CYMBALTA [Concomitant]
     Dosage: 30 mg, UNK
  3. KLONOPIN [Concomitant]
     Dosage: 2 mg, UNK
  4. PANTOPRAZOLE [Concomitant]
     Dosage: 40 mg, UNK
  5. METHOCARBAMOL [Concomitant]
     Dosage: 750 mg, UNK
  6. FLONASE [Concomitant]
     Dosage: spray 0.05%
  7. MOBIC [Concomitant]
     Dosage: 15 mg, UNK
  8. OPANA [Concomitant]
     Dosage: 20 mg, UNK
  9. MULTIVITAMIN                       /00097801/ [Concomitant]
  10. IRON [Concomitant]
     Dosage: 50 mg, UNK, TR
  11. VIT D [Concomitant]
     Dosage: High Cap. potency
  12. FOLIC ACID [Concomitant]
     Dosage: 20 mg, UNK
  13. HYDROCODONE W/APAP                 /01554201/ [Concomitant]
     Dosage: 7.5-325
  14. VITAMIN B COMPLEX [Concomitant]
     Dosage: 100 UNK, UNK
  15. CALCIUM D3+K1 [Concomitant]
     Dosage: 750 mg, UNK

REACTIONS (3)
  - Cellulitis [Unknown]
  - Oral pain [Unknown]
  - Nasal discomfort [Unknown]
